FAERS Safety Report 24012457 (Version 1)
Quarter: 2024Q2

REPORT INFORMATION
  Report Type: Spontaneous
  Country: US (occurrence: US)
  Receive Date: 20240625
  Receipt Date: 20240625
  Transmission Date: 20240716
  Serious: No
  Sender: FDA-Public Use
  Company Number: US-JNJFOC-20240643115

PATIENT
  Age: 63 Year
  Sex: Male

DRUGS (1)
  1. STELARA [Suspect]
     Active Substance: USTEKINUMAB
     Indication: Unevaluable event
     Route: 041
     Dates: start: 20240606, end: 20240606

REACTIONS (5)
  - Abdominal discomfort [Unknown]
  - Flushing [Unknown]
  - Chest discomfort [Unknown]
  - Feeling hot [Unknown]
  - Visual field defect [Unknown]

NARRATIVE: CASE EVENT DATE: 20240606
